FAERS Safety Report 12139537 (Version 1)
Quarter: 2016Q1

REPORT INFORMATION
  Report Type: Other
  Country: OM (occurrence: OM)
  Receive Date: 20160303
  Receipt Date: 20160303
  Transmission Date: 20160526
  Serious: No
  Sender: FDA-Public Use
  Company Number: OM-LUPIN PHARMACEUTICALS INC.-2016-00764

PATIENT
  Age: 46 Year
  Sex: Female

DRUGS (1)
  1. DICLOFENAC [Suspect]
     Active Substance: DICLOFENAC
     Indication: BACK PAIN
     Route: 048

REACTIONS (1)
  - Photoonycholysis [Recovered/Resolved]
